FAERS Safety Report 17690824 (Version 2)
Quarter: 2020Q2

REPORT INFORMATION
  Report Type: Report from Study
  Country: RO (occurrence: RO)
  Receive Date: 20200422
  Receipt Date: 20200430
  Transmission Date: 20200714
  Serious: Yes (Hospitalization, Other)
  Sender: FDA-Public Use
  Company Number: RO-ABBVIE-20K-135-3373426-00

PATIENT
  Age: 76 Year
  Sex: Male

DRUGS (13)
  1. MILGAMMA [Concomitant]
     Indication: TYPE 2 DIABETES MELLITUS
     Route: 048
  2. STIMULOTON [Concomitant]
     Indication: DEMENTIA ALZHEIMER^S TYPE
     Route: 048
  3. QUETIAPINE. [Concomitant]
     Active Substance: QUETIAPINE
     Indication: MIXED DEMENTIA
     Route: 048
  4. MILURIT [Concomitant]
     Active Substance: ALLOPURINOL
     Indication: GOUT
     Route: 048
  5. VIREGYT [Concomitant]
     Indication: PARKINSON^S DISEASE
     Route: 048
  6. EMANERA [Concomitant]
     Active Substance: ESOMEPRAZOLE MAGNESIUM
     Indication: GASTRIC DISORDER
     Route: 048
  7. SIOFOR [Concomitant]
     Active Substance: METFORMIN HYDROCHLORIDE
     Indication: TYPE 2 DIABETES MELLITUS
     Route: 048
  8. DUODOPA [Suspect]
     Active Substance: CARBIDOPA\LEVODOPA
     Indication: PARKINSON^S DISEASE
     Dosage: DM=10.00 DC=3.40 ED=1.00 NRED=0; DMN=0.00 DCN=0.00 EDN=0.00 NREDN=0
     Route: 050
     Dates: start: 20160906
  9. MEMANTINE. [Concomitant]
     Active Substance: MEMANTINE
     Indication: MIXED DEMENTIA
     Route: 048
  10. AZILECT [Concomitant]
     Active Substance: RASAGILINE MESYLATE
     Indication: PARKINSON^S DISEASE
     Route: 048
  11. AVODART [Concomitant]
     Active Substance: DUTASTERIDE
     Indication: PROSTATIC ADENOMA
     Route: 048
  12. RIVOTRIL [Concomitant]
     Active Substance: CLONAZEPAM
     Indication: MIXED DEMENTIA
     Route: 048
  13. SIMVACARD [Concomitant]
     Active Substance: SIMVASTATIN
     Indication: HYPERCHOLESTEROLAEMIA
     Route: 048

REACTIONS (5)
  - Subileus [Recovered/Resolved]
  - Dolichocolon [Recovered/Resolved]
  - Mixed dementia [Not Recovered/Not Resolved]
  - Hypercholesterolaemia [Recovering/Resolving]
  - Gout [Recovering/Resolving]

NARRATIVE: CASE EVENT DATE: 20200301
